FAERS Safety Report 6059564-7 (Version None)
Quarter: 2009Q1

REPORT INFORMATION
  Report Type: 
  Country: None (occurrence: None)
  Receive Date: 20090128
  Receipt Date: 20090118
  Transmission Date: 20090719
  Serious: Yes (Hospitalization)
  Sender: FDA-Public Use
  Company Number: 20085912

PATIENT
  Age: 9 Year
  Sex: Female

DRUGS (1)
  1. LIORESAL [Suspect]
     Indication: MUSCLE SPASTICITY
     Dosage: 620 MCG, DAILY, INTRATHECAL
     Route: 037

REACTIONS (6)
  - AGITATION [None]
  - DEVICE FAILURE [None]
  - HYPERHIDROSIS [None]
  - NAUSEA [None]
  - TACHYCARDIA [None]
  - TACHYPNOEA [None]
